FAERS Safety Report 13168260 (Version 1)
Quarter: 2017Q1

REPORT INFORMATION
  Report Type: Spontaneous
  Country: FR (occurrence: FR)
  Receive Date: 20170131
  Receipt Date: 20170131
  Transmission Date: 20170428
  Serious: Yes (Hospitalization)
  Sender: FDA-Public Use
  Company Number: FR-TEVA-732541ROM

PATIENT
  Age: 42 Year
  Sex: Male

DRUGS (16)
  1. RITUXIMAB [Concomitant]
     Active Substance: RITUXIMAB
     Dates: start: 20161222
  2. RITUXIMAB [Concomitant]
     Active Substance: RITUXIMAB
     Indication: B-CELL LYMPHOMA
     Dates: start: 20161208
  3. CORTANCYL [Concomitant]
     Active Substance: PREDNISONE
     Dosage: 70 MILLIGRAM DAILY;
     Route: 048
     Dates: start: 201612, end: 201612
  4. DOXORUBICINE TEVA [Suspect]
     Active Substance: DOXORUBICIN
     Dosage: 50 MG/M2 DAILY;
     Route: 041
     Dates: start: 20161222, end: 20161222
  5. VINCRISTINE [Concomitant]
     Active Substance: VINCRISTINE
     Indication: B-CELL LYMPHOMA
     Dosage: FIRST COURSE OF R-CHOP PROTOCOL
     Dates: start: 20161208
  6. POLARAMINE [Concomitant]
     Active Substance: DEXCHLORPHENIRAMINE MALEATE
     Indication: PREMEDICATION
     Dosage: 2 MILLIGRAM DAILY;
     Route: 048
     Dates: start: 20161208, end: 20161208
  7. VINCRISTINE [Concomitant]
     Active Substance: VINCRISTINE
     Dosage: SECOND COURSE OF R-CHOP PROTOCOL
     Dates: start: 20161222
  8. PARACETAMOL [Concomitant]
     Active Substance: ACETAMINOPHEN
     Indication: PREMEDICATION
     Dosage: 1 GRAM DAILY;
     Route: 048
     Dates: start: 20161208, end: 20161208
  9. POLARAMINE [Concomitant]
     Active Substance: DEXCHLORPHENIRAMINE MALEATE
     Dosage: 2 MILLIGRAM DAILY;
     Route: 048
     Dates: start: 20161222, end: 20161222
  10. CYCLOPHOSPHAMIDE. [Concomitant]
     Active Substance: CYCLOPHOSPHAMIDE
     Dosage: SECOND COURSE OF R-CHOP PROTOCOL
     Dates: start: 20161222
  11. PARACETAMOL [Concomitant]
     Active Substance: ACETAMINOPHEN
     Dosage: 1 GRAM DAILY;
     Route: 048
     Dates: start: 20161222, end: 20161222
  12. METHYLPREDNISOLONE. [Concomitant]
     Active Substance: METHYLPREDNISOLONE
     Dosage: 100 MILLIGRAM DAILY;
     Route: 036
     Dates: start: 20121222, end: 20121222
  13. CYCLOPHOSPHAMIDE. [Concomitant]
     Active Substance: CYCLOPHOSPHAMIDE
     Indication: B-CELL LYMPHOMA
     Dosage: FIRST COURSE OF R-CHOP PROTOCOL
     Dates: start: 20161208
  14. CORTANCYL [Concomitant]
     Active Substance: PREDNISONE
     Indication: B-CELL LYMPHOMA
     Dosage: 70 MILLIGRAM DAILY;
     Route: 048
     Dates: start: 201612, end: 201612
  15. METHYLPREDNISOLONE. [Concomitant]
     Active Substance: METHYLPREDNISOLONE
     Indication: PREMEDICATION
     Dosage: 100 MILLIGRAM DAILY;
     Route: 042
     Dates: start: 20161208, end: 20161208
  16. DOXORUBICINE TEVA [Suspect]
     Active Substance: DOXORUBICIN
     Indication: B-CELL LYMPHOMA
     Dosage: 50 MG/M2 DAILY;
     Route: 041
     Dates: start: 20161208, end: 20161208

REACTIONS (6)
  - Feeling hot [Recovered/Resolved]
  - Infusion related reaction [Recovered/Resolved]
  - Larynx irritation [Recovered/Resolved]
  - Hypersensitivity [Recovered/Resolved]
  - Erythema [Recovered/Resolved]
  - Pruritus [Recovered/Resolved]

NARRATIVE: CASE EVENT DATE: 20161208
